FAERS Safety Report 5081806-5 (Version None)
Quarter: 2006Q3

REPORT INFORMATION
  Report Type: 
  Country: None (occurrence: None)
  Receive Date: 20060816
  Receipt Date: 20060810
  Transmission Date: 20061208
  Serious: Yes (Death, Disabling)
  Sender: FDA-Public Use
  Company Number: JP-JPN-A200603105

PATIENT
  Age: 58 Year
  Sex: Male

DRUGS (15)
  1. EPIVIR [Suspect]
     Indication: HIV INFECTION
     Dosage: 150MG TWICE PER DAY
     Route: 048
     Dates: start: 20040904, end: 20050516
  2. EPZICOM [Suspect]
     Indication: HIV INFECTION
     Route: 048
     Dates: start: 20050517, end: 20050601
  3. STOCRIN [Concomitant]
     Indication: HIV INFECTION
     Dosage: 600MG PER DAY
     Route: 048
     Dates: start: 20050129, end: 20050601
  4. TENOFOVIR DISOPROXIL FUMARATE [Concomitant]
     Indication: HIV INFECTION
     Dosage: 300MG PER DAY
     Route: 048
     Dates: start: 20050129, end: 20050516
  5. KALETRA [Concomitant]
     Indication: HIV INFECTION
     Route: 048
     Dates: start: 20040904, end: 20050128
  6. ZERIT [Concomitant]
     Indication: HIV INFECTION
     Dosage: 60MG PER DAY
     Route: 048
     Dates: start: 20040904, end: 20050128
  7. BACTRIM [Concomitant]
     Route: 048
     Dates: start: 20050401, end: 20050601
  8. CALCIUM LACTATE [Concomitant]
     Dosage: 3G TWICE PER DAY
     Route: 048
     Dates: start: 20050401, end: 20050601
  9. ALFAROL [Concomitant]
     Dosage: 2MCG PER DAY
     Route: 048
     Dates: start: 20050401, end: 20050601
  10. THYRADIN S [Concomitant]
     Indication: HYPOTHYROIDISM
     Dosage: 50MCG PER DAY
     Route: 048
     Dates: start: 20050401, end: 20050601
  11. TAKEPRON [Concomitant]
     Indication: GASTRIC ULCER
     Dosage: 30MG PER DAY
     Route: 048
     Dates: start: 20050401, end: 20050601
  12. OXYCONTIN [Concomitant]
     Indication: PHARYNGEAL CANCER STAGE UNSPECIFIED
     Route: 048
     Dates: start: 20050401, end: 20050601
  13. DUROTEP [Concomitant]
     Indication: PHARYNGEAL CANCER STAGE UNSPECIFIED
     Route: 062
     Dates: start: 20050515, end: 20050601
  14. CHEMOTHERAPY [Concomitant]
     Route: 065
  15. RADIOTHERAPY [Concomitant]
     Route: 065

REACTIONS (2)
  - ANAEMIA [None]
  - PHARYNGEAL CANCER STAGE UNSPECIFIED [None]
